FAERS Safety Report 7207152-9 (Version None)
Quarter: 2010Q4

REPORT INFORMATION
  Report Type: 
  Country: None (occurrence: None)
  Receive Date: 20101217
  Receipt Date: 20101201
  Transmission Date: 20110411
  Serious: Yes (Hospitalization, Other)
  Sender: FDA-Public Use
  Company Number: 019639

PATIENT
  Sex: Female

DRUGS (1)
  1. XYZAL [Suspect]
     Dosage: (ONLY TAKES ON OR TWO DOSES ORAL)
     Route: 048

REACTIONS (4)
  - DYSKINESIA [None]
  - EXTRAPYRAMIDAL DISORDER [None]
  - MONOPLEGIA [None]
  - MUSCULAR WEAKNESS [None]
